FAERS Safety Report 19660999 (Version 1)
Quarter: 2021Q3

REPORT INFORMATION
  Report Type: Spontaneous
  Country: US (occurrence: US)
  Receive Date: 20210805
  Receipt Date: 20210805
  Transmission Date: 20211014
  Serious: Yes (Hospitalization)
  Sender: FDA-Public Use
  Company Number: None

PATIENT
  Age: 66 Year
  Sex: Male
  Weight: 86.18 kg

DRUGS (14)
  1. MELATONIN [Concomitant]
     Active Substance: MELATONIN
  2. GEMFIBROZIL. [Concomitant]
     Active Substance: GEMFIBROZIL
  3. ACYCLOVIR. [Concomitant]
     Active Substance: ACYCLOVIR
  4. TEMOZOLOMIDE 100MG CAPS [Suspect]
     Active Substance: TEMOZOLOMIDE
     Indication: BRAIN NEOPLASM MALIGNANT
     Dosage: D1?5 OF 28 DAY
     Route: 048
     Dates: start: 20210714
  5. HYDROCORTISONE. [Concomitant]
     Active Substance: HYDROCORTISONE
  6. KEPPRA [Concomitant]
     Active Substance: LEVETIRACETAM
  7. ATORVASTATIN [Concomitant]
     Active Substance: ATORVASTATIN
  8. METOPROLOL TART [Concomitant]
     Active Substance: METOPROLOL TARTRATE
  9. SENA S [Concomitant]
  10. DEXAMETHASONE. [Concomitant]
     Active Substance: DEXAMETHASONE
  11. ZETIA [Concomitant]
     Active Substance: EZETIMIBE
  12. MULTIVITAMIN [Concomitant]
     Active Substance: VITAMINS
  13. NITROGLYCERIN. [Concomitant]
     Active Substance: NITROGLYCERIN
  14. DOCUSATE [Concomitant]
     Active Substance: DOCUSATE

REACTIONS (1)
  - Hospitalisation [None]
